FAERS Safety Report 9128866 (Version 1)
Quarter: 2013Q1

REPORT INFORMATION
  Report Type: Spontaneous
  Country: US (occurrence: US)
  Receive Date: 20130228
  Receipt Date: 20130228
  Transmission Date: 20140127
  Serious: No
  Sender: FDA-Public Use
  Company Number: US-ASTRAZENECA-2013SE11014

PATIENT
  Age: 69 Year
  Sex: Female
  Weight: 81.6 kg

DRUGS (6)
  1. NEXIUM [Suspect]
     Indication: GASTROOESOPHAGEAL REFLUX DISEASE
     Route: 048
  2. ZESTRIL [Suspect]
     Route: 048
  3. RANITIDINE [Concomitant]
  4. LOPRESSOR [Concomitant]
  5. CELEXA [Concomitant]
  6. PRAVASTATIN [Concomitant]

REACTIONS (3)
  - Abdominal discomfort [Unknown]
  - Diarrhoea [Unknown]
  - Drug dose omission [Unknown]
